FAERS Safety Report 12781128 (Version 2)
Quarter: 2017Q1

REPORT INFORMATION
  Report Type: Spontaneous
  Country: DE (occurrence: DE)
  Receive Date: 20160926
  Receipt Date: 20170315
  Transmission Date: 20170428
  Serious: Yes (Other)
  Sender: FDA-Public Use
  Company Number: GXKR2016DE004466

PATIENT
  Age: 32 Year
  Sex: Male
  Weight: 86 kg

DRUGS (1)
  1. CICLOSPORIN 1 A PHARMA [Suspect]
     Active Substance: CYCLOSPORINE
     Indication: PSORIASIS
     Dosage: VARYING FROM 250 TO 350 MG/DAY
     Route: 048
     Dates: start: 201508, end: 201611

REACTIONS (2)
  - Infertility male [Not Recovered/Not Resolved]
  - Sperm analysis abnormal [Not Recovered/Not Resolved]

NARRATIVE: CASE EVENT DATE: 2016
